FAERS Safety Report 8335299-2 (Version None)
Quarter: 2012Q2

REPORT INFORMATION
  Report Type: 
  Country: None (occurrence: None)
  Receive Date: 20120503
  Receipt Date: 20120427
  Transmission Date: 20120825
  Serious: Yes (Other)
  Sender: FDA-Public Use
  Company Number: US-PFIZER INC-2012063146

PATIENT
  Sex: Male
  Weight: 102 kg

DRUGS (6)
  1. DILANTIN [Suspect]
     Indication: EPILEPSY
     Dosage: 200 MG, 2X/DAY
     Dates: start: 19841201
  2. DILANTIN [Suspect]
     Indication: CONVULSION
  3. CLONAZEPAM [Suspect]
     Dosage: UNK
  4. CLONAZEPAM [Suspect]
     Dosage: 1 MG, 5X/DAY
  5. CLONAZEPAM [Suspect]
     Dosage: 2 MG DAILY
  6. ONFI [Suspect]
     Dosage: 10 MG, UNK

REACTIONS (6)
  - MIGRAINE [None]
  - DYSGEUSIA [None]
  - FALL [None]
  - CONVULSION [None]
  - FRUSTRATION [None]
  - MEMORY IMPAIRMENT [None]
